FAERS Safety Report 8994914 (Version 1)
Quarter: 2012Q4

REPORT INFORMATION
  Report Type: Spontaneous
  Country: GB (occurrence: None)
  Receive Date: 20121221
  Receipt Date: 20121221
  Transmission Date: 20130627
  Serious: Yes (Disabling, Other)
  Sender: FDA-Public Use
  Company Number: AUR-APL-2012-05402

PATIENT
  Age: 18 Year
  Sex: Female
  Weight: 79.82 kg

DRUGS (3)
  1. CITALOPRAM [Suspect]
     Indication: SUICIDAL DEPRESSION
     Route: 048
     Dates: start: 20120811
  2. SERTRALINE [Suspect]
     Indication: DRUG USE FOR UNKNOWN INDICATION
  3. DIAZEPAM [Suspect]
     Indication: DRUG USE FOR UNKNOWN INDICATION

REACTIONS (5)
  - Panic attack [None]
  - Anxiety disorder [None]
  - Panic disorder with agoraphobia [None]
  - Drug ineffective [None]
  - Condition aggravated [None]
